FAERS Safety Report 19513584 (Version 8)
Quarter: 2024Q1

REPORT INFORMATION
  Report Type: Report from Study
  Country: CO (occurrence: CO)
  Receive Date: 20210710
  Receipt Date: 20240318
  Transmission Date: 20240409
  Serious: Yes (Disabling, Other)
  Sender: FDA-Public Use
  Company Number: CO-ABBVIE-21K-036-3984240-00

PATIENT
  Sex: Female
  Weight: 58 kg

DRUGS (7)
  1. HUMIRA [Suspect]
     Active Substance: ADALIMUMAB
     Indication: Ankylosing spondylitis
     Route: 058
     Dates: start: 20150422
  2. HUMIRA [Suspect]
     Active Substance: ADALIMUMAB
  3. ACETAMINOPHEN\CODEINE PHOSPHATE [Suspect]
     Active Substance: ACETAMINOPHEN\CODEINE PHOSPHATE
     Indication: Fibromyalgia
     Route: 048
  4. ACETAMINOPHEN\CODEINE PHOSPHATE [Suspect]
     Active Substance: ACETAMINOPHEN\CODEINE PHOSPHATE
     Indication: Fibromyalgia
     Route: 048
     Dates: start: 2018
  5. SALAZIN [Concomitant]
     Indication: Product used for unknown indication
  6. SULFADIAZINE [Concomitant]
     Active Substance: SULFADIAZINE
     Indication: Product used for unknown indication
  7. CYANOCOBALAMIN\FOLIC ACID\PYRIDOXINE HYDROCHLORIDE [Concomitant]
     Active Substance: CYANOCOBALAMIN\FOLIC ACID\PYRIDOXINE HYDROCHLORIDE
     Indication: Product used for unknown indication
     Route: 048

REACTIONS (45)
  - Disability [Not Recovered/Not Resolved]
  - Arthralgia [Recovered/Resolved]
  - Pain [Not Recovered/Not Resolved]
  - Uterine polyp [Recovered/Resolved]
  - Ligament sprain [Not Recovered/Not Resolved]
  - Abortion spontaneous [Unknown]
  - Inflammation [Not Recovered/Not Resolved]
  - Uterine disorder [Recovered/Resolved]
  - Uterine disorder [Not Recovered/Not Resolved]
  - Muscular weakness [Not Recovered/Not Resolved]
  - Uterine polyp [Not Recovered/Not Resolved]
  - Mental disorder [Not Recovered/Not Resolved]
  - Crying [Not Recovered/Not Resolved]
  - Depression [Not Recovered/Not Resolved]
  - Gait disturbance [Not Recovered/Not Resolved]
  - Maternal exposure during pregnancy [Unknown]
  - Mobility decreased [Recovered/Resolved]
  - Finger deformity [Not Recovered/Not Resolved]
  - Heavy menstrual bleeding [Not Recovered/Not Resolved]
  - Feeling abnormal [Unknown]
  - Malaise [Not Recovered/Not Resolved]
  - Mobility decreased [Not Recovered/Not Resolved]
  - Disorientation [Not Recovered/Not Resolved]
  - Movement disorder [Not Recovered/Not Resolved]
  - Joint swelling [Unknown]
  - Fibromyalgia [Not Recovered/Not Resolved]
  - Musculoskeletal stiffness [Not Recovered/Not Resolved]
  - Anxiety [Not Recovered/Not Resolved]
  - Pruritus [Not Recovered/Not Resolved]
  - Arthritis [Not Recovered/Not Resolved]
  - COVID-19 [Not Recovered/Not Resolved]
  - Vomiting [Not Recovered/Not Resolved]
  - Back pain [Recovered/Resolved]
  - Neck pain [Not Recovered/Not Resolved]
  - Pain in extremity [Recovered/Resolved]
  - Arthralgia [Recovered/Resolved]
  - Pain in extremity [Recovered/Resolved]
  - Blood cholesterol increased [Not Recovered/Not Resolved]
  - Drug ineffective [Not Recovered/Not Resolved]
  - Arthralgia [Not Recovered/Not Resolved]
  - Spinal pain [Not Recovered/Not Resolved]
  - Back pain [Not Recovered/Not Resolved]
  - Uterine pain [Not Recovered/Not Resolved]
  - Pain in extremity [Recovered/Resolved]
  - Pain in extremity [Not Recovered/Not Resolved]

NARRATIVE: CASE EVENT DATE: 20180101
